FAERS Safety Report 14695184 (Version 1)
Quarter: 2018Q1

REPORT INFORMATION
  Report Type: Spontaneous
  Country: US (occurrence: US)
  Receive Date: 20180329
  Receipt Date: 20180329
  Transmission Date: 20180509
  Serious: Yes (Other)
  Sender: FDA-Public Use
  Company Number: US-UPSHER-SMITH LABORATORIES, LLC-2017USL00142

PATIENT
  Sex: Female

DRUGS (1)
  1. PREVALITE [Suspect]
     Active Substance: CHOLESTYRAMINE
     Dosage: UNK
     Dates: start: 2012

REACTIONS (3)
  - Frequent bowel movements [Unknown]
  - Rectal haemorrhage [Unknown]
  - Abdominal pain [Unknown]

NARRATIVE: CASE EVENT DATE: 2017
